FAERS Safety Report 5046550-9 (Version None)
Quarter: 2006Q2

REPORT INFORMATION
  Report Type: 
  Country: None (occurrence: None)
  Receive Date: 20060630
  Receipt Date: 20060621
  Transmission Date: 20061013
  Serious: Yes (Hospitalization)
  Sender: FDA-Public Use
  Company Number: 2006VX000723

PATIENT
  Age: 46 Year
  Sex: Male
  Weight: 76.8393 kg

DRUGS (3)
  1. LIBRIUM [Suspect]
     Indication: ANXIETY
     Dosage: 50 MG;TID;PO
     Route: 048
     Dates: start: 20060501, end: 20060501
  2. ALVIMOPAN (NO PREF. NAME) (0.5 MG) [Suspect]
     Indication: INTESTINAL FUNCTIONAL DISORDER
     Dosage: 0.5 MG;BID;PO
     Route: 048
     Dates: start: 20051102
  3. PREGABALIN (NO PREF. NAME) [Suspect]
     Indication: PAIN
     Dosage: 150 MG;BID;PO
     Route: 048
     Dates: start: 20060331, end: 20060528

REACTIONS (3)
  - BALANCE DISORDER [None]
  - COORDINATION ABNORMAL [None]
  - MEMORY IMPAIRMENT [None]
